FAERS Safety Report 18551338 (Version 6)
Quarter: 2024Q1

REPORT INFORMATION
  Report Type: Spontaneous
  Country: US (occurrence: US)
  Receive Date: 20201126
  Receipt Date: 20240308
  Transmission Date: 20240409
  Serious: Yes (Other)
  Sender: FDA-Public Use
  Company Number: US-PFIZER INC-2020468341

PATIENT
  Age: 34 Year
  Sex: Female

DRUGS (9)
  1. DOCETAXEL [Suspect]
     Active Substance: DOCETAXEL\DOCETAXEL ANHYDROUS
     Indication: Breast cancer stage I
     Dosage: 150 MG, CYCLIC (EVERY 2 WEEKS)
     Dates: start: 20150824, end: 20150908
  2. DOCETAXEL [Suspect]
     Active Substance: DOCETAXEL\DOCETAXEL ANHYDROUS
     Indication: Breast cancer female
     Dosage: 140 MG, CYCLIC (EVERY 2 WEEKS)
     Dates: start: 20150922, end: 20151006
  3. CYTOXAN [Concomitant]
     Active Substance: CYCLOPHOSPHAMIDE
     Indication: Chemotherapy
     Dosage: UNK, CYCLIC (4 CYCLES)
     Dates: start: 20150824, end: 201510
  4. TAXOTERE [Concomitant]
     Active Substance: DOCETAXEL
     Indication: Chemotherapy
     Dosage: UNK
     Dates: start: 20150824
  5. CYCLOPHOSPHAMIDE [Concomitant]
     Active Substance: CYCLOPHOSPHAMIDE
     Indication: Chemotherapy
     Dosage: UNK
  6. TAMOXIFEN [Concomitant]
     Active Substance: TAMOXIFEN
     Indication: Chemotherapy
     Dosage: UNK
  7. ALOXI [Concomitant]
     Active Substance: PALONOSETRON HYDROCHLORIDE
     Indication: Chemotherapy
     Dosage: UNK
  8. DEXAMETHASONE [Concomitant]
     Active Substance: DEXAMETHASONE
     Indication: Chemotherapy
     Dosage: UNK
  9. EMEND [Concomitant]
     Active Substance: APREPITANT
     Indication: Chemotherapy
     Dosage: UNK

REACTIONS (4)
  - Dacryostenosis acquired [Not Recovered/Not Resolved]
  - Lacrimation increased [Not Recovered/Not Resolved]
  - Lacrimal structure injury [Not Recovered/Not Resolved]
  - Eye injury [Unknown]

NARRATIVE: CASE EVENT DATE: 20150908
